FAERS Safety Report 7297316-0 (Version None)
Quarter: 2011Q1

REPORT INFORMATION
  Report Type: 
  Country: None (occurrence: None)
  Receive Date: 20110204
  Receipt Date: 20110126
  Transmission Date: 20110831
  Serious: Yes (Death)
  Sender: FDA-Public Use
  Company Number: 013793

PATIENT
  Sex: Male

DRUGS (1)
  1. MACUGAN (PEGAPTANIB SODIUM) SOLUTION FOR INJECTION [Suspect]

REACTIONS (1)
  - DEATH [None]
